FAERS Safety Report 23381665 (Version 1)
Quarter: 2024Q1

REPORT INFORMATION
  Report Type: Spontaneous
  Country: CN (occurrence: CN)
  Receive Date: 20240109
  Receipt Date: 20240109
  Transmission Date: 20240410
  Serious: Yes (Other)
  Sender: FDA-Public Use
  Company Number: None

PATIENT
  Age: 14 Year
  Sex: Male
  Weight: 62 kg

DRUGS (9)
  1. INDOMETHACIN [Suspect]
     Active Substance: INDOMETHACIN
     Indication: Hypokalaemia
     Dosage: 15 MG, 2 TIMES PER DAY
  2. INDOMETHACIN [Suspect]
     Active Substance: INDOMETHACIN
     Indication: Growth retardation
     Dosage: 75 MG PER DAY DIVIDED BY 3 TIMES A DAY
  3. INDOMETHACIN [Suspect]
     Active Substance: INDOMETHACIN
     Indication: Gitelman^s syndrome
     Dosage: 50 MG PER DAY
  4. INDOMETHACIN [Suspect]
     Active Substance: INDOMETHACIN
     Dosage: 37.5 MG PER DAY DIVIDED THREE TIMES A DAY
  5. MAGNESIUM ASPARTATE\POTASSIUM ASPARTATE [Concomitant]
     Active Substance: MAGNESIUM ASPARTATE\POTASSIUM ASPARTATE
     Indication: Hypomagnesaemia
     Route: 048
  6. MAGNESIUM ASPARTATE\POTASSIUM ASPARTATE [Concomitant]
     Active Substance: MAGNESIUM ASPARTATE\POTASSIUM ASPARTATE
     Indication: Blood magnesium
  7. POTASSIUM [Concomitant]
     Active Substance: POTASSIUM
     Indication: Mineral supplementation
     Dosage: SUBSEQUENTLY DECREASED
  8. POTASSIUM [Concomitant]
     Active Substance: POTASSIUM
     Dosage: UNK,UNK
     Route: 048
  9. POTASSIUM [Concomitant]
     Active Substance: POTASSIUM
     Dosage: UNK,UNK
     Route: 042

REACTIONS (3)
  - Abdominal pain upper [Recovering/Resolving]
  - Chronic gastritis [Recovering/Resolving]
  - Regurgitation [Recovering/Resolving]
